FAERS Safety Report 8661201 (Version 3)
Quarter: 2012Q4

REPORT INFORMATION
  Report Type: 
  Country: JP (occurrence: JP)
  Receive Date: 20120712
  Receipt Date: 20121220
  Transmission Date: 20130627
  Serious: Yes (Life-Threatening)
  Sender: FDA-Public Use
  Company Number: JP-009507513-2012SP036759

PATIENT
  Age: 59 Year
  Sex: Female
  Weight: 48 kg

DRUGS (6)
  1. PEGINTRON [Suspect]
     Indication: CHRONIC HEPATITIS C
     Dosage: 1.5 ?g/kg, Unknown
     Route: 058
     Dates: start: 20120604, end: 20120717
  2. REBETOL [Suspect]
     Indication: CHRONIC HEPATITIS C
     Dosage: 600 mg, qd
     Route: 048
     Dates: start: 20120604, end: 20120607
  3. REBETOL [Suspect]
     Dosage: 400 mg, qd
     Route: 048
     Dates: start: 20120608, end: 20120703
  4. REBETOL [Suspect]
     Dosage: 200 mg, qd
     Route: 048
     Dates: start: 20120704, end: 20120717
  5. TELAVIC [Suspect]
     Indication: CHRONIC HEPATITIS C
     Dosage: 2250 mg, qd
     Route: 048
     Dates: start: 20120604, end: 20120610
  6. TELAVIC [Suspect]
     Dosage: 750 mg, qd
     Route: 048
     Dates: start: 20120619, end: 20120717

REACTIONS (8)
  - Rash [Recovering/Resolving]
  - Purpura [None]
  - Skin ulcer [None]
  - Mouth ulceration [None]
  - Skin erosion [None]
  - Oral mucosa erosion [None]
  - Anaemia [None]
  - Lip erosion [None]
